FAERS Safety Report 8535566 (Version 3)
Quarter: 2014Q2

REPORT INFORMATION
  Report Type: Spontaneous
  Country: JP (occurrence: JP)
  Receive Date: 20120430
  Receipt Date: 20140408
  Transmission Date: 20141212
  Serious: Yes (Hospitalization, Other)
  Sender: FDA-Public Use
  Company Number: JP-PFIZER INC-2012102821

PATIENT
  Age: 60 Year
  Sex: Male
  Weight: 55 kg

DRUGS (7)
  1. AZULFIDINE EN [Suspect]
     Indication: SCLERODERMA
     Dosage: 500 MG, 1X/DAY
     Route: 048
     Dates: start: 20120314, end: 20120328
  2. AZULFIDINE EN [Suspect]
     Indication: SJOGREN^S SYNDROME
     Dosage: 1000 MG, 1X/DAY
     Route: 048
     Dates: start: 20120329, end: 20120417
  3. AZULFIDINE EN [Suspect]
     Indication: ARTHROPATHY
  4. PREDNISOLONE [Concomitant]
     Dosage: 5 MG, 1X/DAY
     Route: 048
  5. PARIET [Concomitant]
     Dosage: 10 MG, 1X/DAY
     Route: 048
  6. LOBU [Concomitant]
     Dosage: 180 MG, 1X/DAY
     Route: 048
  7. ACTOS [Concomitant]
     Dosage: 15 MG, 1X/DAY
     Route: 048

REACTIONS (7)
  - Pseudomonal sepsis [Recovering/Resolving]
  - Histiocytosis haematophagic [Recovering/Resolving]
  - Disseminated intravascular coagulation [Recovering/Resolving]
  - Agranulocytosis [Recovering/Resolving]
  - Cytomegalovirus infection [Recovering/Resolving]
  - Deep vein thrombosis [Recovering/Resolving]
  - Acute respiratory failure [Recovering/Resolving]
